FAERS Safety Report 6525401-7 (Version None)
Quarter: 2009Q4

REPORT INFORMATION
  Report Type: 
  Country: None (occurrence: None)
  Receive Date: 20091222
  Receipt Date: 20091216
  Transmission Date: 20100525
  Serious: Yes (Disabling)
  Sender: FDA-Public Use
  Company Number: CQT2-2009-00039

PATIENT
  Age: 63 Year
  Sex: Female
  Weight: 58.5 kg

DRUGS (4)
  1. HYDROXYUREA [Suspect]
     Indication: ESSENTIAL THROMBOCYTHAEMIA
     Dosage: 750 MG, 1X/DAY:QD, ORAL
     Route: 048
     Dates: start: 19940422
  2. ACETYLSALICYLIC ACID SRT [Suspect]
     Indication: ESSENTIAL THROMBOCYTHAEMIA
     Dosage: 75 MG, 1X/DAY:QD, ORAL
     Route: 048
     Dates: start: 20070406
  3. 422 (ANAGRELIDE)        (422 (ANGAGRELIDE)) CAPSULE [Suspect]
     Dosage: 0.5 MG, 1X/DAY:QD, ORAL
     Route: 048
     Dates: start: 20091201
  4. ALLOPURINOL [Concomitant]

REACTIONS (6)
  - ALANINE AMINOTRANSFERASE INCREASED [None]
  - BLOOD ALKALINE PHOSPHATASE INCREASED [None]
  - BLOOD BILIRUBIN INCREASED [None]
  - HEPATIC FUNCTION ABNORMAL [None]
  - MOUTH ULCERATION [None]
  - MYELOFIBROSIS [None]
